FAERS Safety Report 4560736-9 (Version None)
Quarter: 2005Q1

REPORT INFORMATION
  Report Type: 
  Country: None (occurrence: None)
  Receive Date: 20050121
  Receipt Date: 20050112
  Transmission Date: 20050727
  Serious: Yes (Other)
  Sender: FDA-Public Use
  Company Number: 2005-01-1064

PATIENT
  Age: 63 Year
  Sex: Male

DRUGS (15)
  1. GARAMYCIN [Suspect]
     Dosage: 480 MG QD INTRAVENOUS
     Route: 042
  2. FUROSEMIDE [Suspect]
     Dosage: 160 MG QD ORAL
     Route: 048
  3. ENALAPRIL MALEATE [Suspect]
     Dosage: 10 MG QD ORAL
     Route: 048
  4. CLOXACILLIN [Suspect]
     Dosage: 4 GRAMS QD INTRAVENOUS
     Route: 042
  5. ASPIRIN [Concomitant]
  6. CIPROFLOXACIN HCL [Concomitant]
  7. LACTULOSE [Concomitant]
  8. LORAZEPAM [Concomitant]
  9. MORPHINE SULFATE [Concomitant]
  10. POTASSIUM CHLORIDE [Concomitant]
  11. RANITIDINE [Concomitant]
  12. SENNA [Concomitant]
  13. TYLENOL W/ CODEINE NO. 3 [Concomitant]
  14. WARFARIN SODIUM [Concomitant]
  15. DOCUSATE [Concomitant]

REACTIONS (6)
  - BALANCE DISORDER [None]
  - BLOOD CREATININE INCREASED [None]
  - BLOOD UREA INCREASED [None]
  - HAEMODIALYSIS [None]
  - HEARING IMPAIRED [None]
  - HYPERKALAEMIA [None]
